FAERS Safety Report 8043576-8 (Version None)
Quarter: 2012Q1

REPORT INFORMATION
  Report Type: 
  Country: None (occurrence: None)
  Receive Date: 20120112
  Receipt Date: 20120109
  Transmission Date: 20120608
  Serious: Yes (Death)
  Sender: FDA-Public Use
  Company Number: CN-ROCHE-1028712

PATIENT

DRUGS (4)
  1. AZATHIOPRINE [Suspect]
     Indication: RENAL TRANSPLANT
  2. MYCOPHENOLATE MOFETIL (CELLCEPT) [Suspect]
     Indication: RENAL TRANSPLANT
  3. PREDNISONE [Suspect]
     Indication: RENAL TRANSPLANT
  4. CYCLOSPORINE [Suspect]
     Indication: RENAL TRANSPLANT

REACTIONS (7)
  - BLADDER SQUAMOUS CELL CARCINOMA STAGE UNSPECIFIED [None]
  - MALIGNANT NEOPLASM OF RENAL PELVIS [None]
  - URETERIC CANCER [None]
  - BLADDER TRANSITIONAL CELL CARCINOMA [None]
  - RENAL CANCER [None]
  - RENAL CELL CARCINOMA [None]
  - BLADDER ADENOCARCINOMA STAGE UNSPECIFIED [None]
